FAERS Safety Report 16403954 (Version 1)
Quarter: 2019Q2

REPORT INFORMATION
  Report Type: Spontaneous
  Country: DK (occurrence: DK)
  Receive Date: 20190607
  Receipt Date: 20190607
  Transmission Date: 20190711
  Serious: Yes (Other)
  Sender: FDA-Public Use
  Company Number: PHHY2019DK129408

PATIENT
  Age: 57 Year
  Sex: Female

DRUGS (1)
  1. RAMIPRIL+HYDROCHLOROTHIAZIDE [Suspect]
     Active Substance: HYDROCHLOROTHIAZIDE\RAMIPRIL
     Indication: HYPERTENSION
     Dosage: 1 DF, QD
     Route: 048
     Dates: start: 2005, end: 201812

REACTIONS (1)
  - Malignant melanoma of sites other than skin [Unknown]

NARRATIVE: CASE EVENT DATE: 2011
